FAERS Safety Report 10497635 (Version 1)
Quarter: 2014Q4

REPORT INFORMATION
  Report Type: Spontaneous
  Country: DE (occurrence: DE)
  Receive Date: 20141006
  Receipt Date: 20141006
  Transmission Date: 20150528
  Serious: Yes (Other)
  Sender: FDA-Public Use
  Company Number: PHHY2014DE125610

PATIENT
  Age: 70 Year
  Sex: Female

DRUGS (1)
  1. SANDOSTATIN LAR DEPOT [Suspect]
     Active Substance: OCTREOTIDE ACETATE
     Indication: NEUROENDOCRINE TUMOUR
     Dosage: 30 MG, UNK
     Route: 065
     Dates: start: 2002

REACTIONS (10)
  - Renal function test abnormal [Unknown]
  - Malignant peritoneal neoplasm [Unknown]
  - Hepatic necrosis [Unknown]
  - Metastases to bone [Unknown]
  - Ascites [Unknown]
  - Weight increased [Unknown]
  - Waist circumference increased [Unknown]
  - Diabetes mellitus [Unknown]
  - Hepatic mass [Unknown]
  - Decreased appetite [Unknown]

NARRATIVE: CASE EVENT DATE: 201011
